FAERS Safety Report 16779028 (Version 1)
Quarter: 2019Q3

REPORT INFORMATION
  Report Type: Spontaneous
  Country: US (occurrence: US)
  Receive Date: 20190906
  Receipt Date: 20190906
  Transmission Date: 20191005
  Serious: Yes (Other)
  Sender: FDA-Public Use
  Company Number: US-CIPLA LTD.-2019US00010

PATIENT

DRUGS (2)
  1. TESTOSTERONE. [Concomitant]
     Active Substance: TESTOSTERONE
     Indication: SUPPLEMENTATION THERAPY
     Dosage: 0.1 %, THREE TIMES A WEEK OVER 3 YEARS (HORMONAL CREAM)
     Route: 065
  2. MELOXICAM. [Suspect]
     Active Substance: MELOXICAM
     Indication: SWELLING
     Dosage: 7.5 MG, QD (ONCE A DAY)
     Route: 048
     Dates: start: 20181227, end: 20181227

REACTIONS (14)
  - Mouth swelling [Not Recovered/Not Resolved]
  - Toothache [Unknown]
  - Urticaria [Recovered/Resolved]
  - Headache [Unknown]
  - Ear swelling [Unknown]
  - Oral mucosal blistering [Not Recovered/Not Resolved]
  - Pain [Unknown]
  - Ear discomfort [Unknown]
  - Eye swelling [Unknown]
  - Pain in jaw [Unknown]
  - Loss of personal independence in daily activities [Unknown]
  - Nasal oedema [Not Recovered/Not Resolved]
  - Dyspnoea [Recovered/Resolved]
  - Swelling face [Unknown]

NARRATIVE: CASE EVENT DATE: 20181227
